FAERS Safety Report 4668259-3 (Version None)
Quarter: 2005Q2

REPORT INFORMATION
  Report Type: 
  Country: None (occurrence: None)
  Receive Date: 20050523
  Receipt Date: 20050308
  Transmission Date: 20051028
  Serious: Yes (Other)
  Sender: FDA-Public Use
  Company Number: PHEH2005US02933

PATIENT
  Age: 74 Year
  Sex: Female

DRUGS (6)
  1. PAMIDRONATE DISODIUM [Suspect]
     Indication: MULTIPLE MYELOMA
     Dosage: 60 MG, QMO
     Route: 042
     Dates: start: 20000406, end: 20050202
  2. TAMOXIFEN [Concomitant]
     Indication: BREAST CANCER
     Dosage: 10 MG, BID
     Dates: start: 20010627
  3. PREDNISONE [Concomitant]
     Dosage: 75 MG/DAY X7
     Dates: start: 20001228, end: 20020727
  4. MELPHALAN [Concomitant]
     Indication: MULTIPLE MYELOMA
     Dosage: 14 MG/DAY X 4DAYS
     Dates: start: 20001228, end: 20020727
  5. EPOGEN [Concomitant]
     Indication: ANAEMIA
     Dosage: 39000 UNK, UNK
     Dates: start: 20010920, end: 20020829
  6. ARANESP [Concomitant]
     Indication: ANAEMIA
     Dosage: 100MG-300MG
     Dates: start: 20020905

REACTIONS (5)
  - EDENTULOUS [None]
  - EXCESSIVE GRANULATION TISSUE [None]
  - ORAL SURGERY [None]
  - OSTEONECROSIS [None]
  - PRIMARY SEQUESTRUM [None]
